FAERS Safety Report 8059904-3 (Version None)
Quarter: 2012Q1

REPORT INFORMATION
  Report Type: 
  Country: None (occurrence: None)
  Receive Date: 20120120
  Receipt Date: 20120116
  Transmission Date: 20120608
  Serious: Yes (Other)
  Sender: FDA-Public Use
  Company Number: US-PFIZER INC-2012012297

PATIENT
  Sex: Female
  Weight: 10.431 kg

DRUGS (1)
  1. GENOTROPIN [Suspect]
     Indication: GROWTH HORMONE DEFICIENCY
     Dosage: UNK
     Dates: start: 20111001, end: 20111213

REACTIONS (8)
  - VOMITING [None]
  - EYE PRURITUS [None]
  - EYE PAIN [None]
  - HEADACHE [None]
  - TREMOR [None]
  - ABASIA [None]
  - COUGH [None]
  - RESPIRATORY TRACT CONGESTION [None]
